FAERS Safety Report 5310451-9 (Version None)
Quarter: 2007Q2

REPORT INFORMATION
  Report Type: 
  Country: None (occurrence: None)
  Receive Date: 20070427
  Receipt Date: 20070418
  Transmission Date: 20071010
  Serious: Yes (Hospitalization)
  Sender: FDA-Public Use
  Company Number: GB-PFIZER INC-2007032146

PATIENT
  Age: 76 Year
  Sex: Male

DRUGS (4)
  1. XALATAN [Suspect]
     Indication: OPEN ANGLE GLAUCOMA
     Route: 047
  2. ALPHAGAN [Suspect]
     Indication: OPEN ANGLE GLAUCOMA
     Route: 047
  3. TIMOLOL MALEATE [Suspect]
     Route: 047
  4. TRUSOPT [Suspect]
     Route: 047

REACTIONS (1)
  - ECTROPION [None]
